FAERS Safety Report 8869158 (Version 1)
Quarter: 2012Q4

REPORT INFORMATION
  Report Type: Spontaneous
  Country: US (occurrence: None)
  Receive Date: 20121025
  Receipt Date: 20121025
  Transmission Date: 20130627
  Serious: Yes (Other)
  Sender: FDA-Public Use
  Company Number: None

PATIENT
  Age: 62 Year
  Sex: Male
  Weight: 83.92 kg

DRUGS (1)
  1. LOVENOX [Suspect]
     Indication: PULMONARY EMBOLISM
     Dosage: 100 mg/ml
     Route: 058
     Dates: start: 20110929, end: 20120923

REACTIONS (3)
  - Injection site thrombosis [None]
  - Injection site haematoma [None]
  - Drug ineffective [None]
